FAERS Safety Report 20105176 (Version 1)
Quarter: 2021Q4

REPORT INFORMATION
  Report Type: Spontaneous
  Country: US (occurrence: US)
  Receive Date: 20211124
  Receipt Date: 20211124
  Transmission Date: 20220303
  Serious: Yes (Hospitalization, Other)
  Sender: FDA-Public Use
  Company Number: US-SA-SAC20211119001027

PATIENT
  Sex: Female

DRUGS (6)
  1. PLAVIX [Suspect]
     Active Substance: CLOPIDOGREL BISULFATE
     Dosage: 75 MG
     Route: 048
     Dates: start: 200405
  2. MINERALS\VITAMINS [Concomitant]
     Active Substance: MINERALS\VITAMINS
     Dosage: UNK
  3. COENZYME Q10 [Concomitant]
     Active Substance: DIETARY SUPPLEMENT\UBIDECARENONE
     Dosage: UNK
  4. AMLODIPINE [Concomitant]
     Active Substance: AMLODIPINE BESYLATE
  5. LOSARTAN [Concomitant]
     Active Substance: LOSARTAN
  6. ASPIRIN [Concomitant]
     Active Substance: ASPIRIN
     Indication: Pain
     Dosage: 325 MG

REACTIONS (15)
  - Paralysis [Unknown]
  - Vitamin D deficiency [Unknown]
  - Fatigue [Unknown]
  - Circulatory collapse [Unknown]
  - Myocardial infarction [Unknown]
  - Haemorrhage [Unknown]
  - Cerebrovascular accident [Unknown]
  - Thrombotic thrombocytopenic purpura [Unknown]
  - Arthralgia [Unknown]
  - Thrombosis [Unknown]
  - Feeling abnormal [Unknown]
  - Memory impairment [Unknown]
  - Back pain [Unknown]
  - Cardiac murmur [Unknown]
  - Fall [Unknown]
